FAERS Safety Report 17135582 (Version 1)
Quarter: 2019Q4

REPORT INFORMATION
  Report Type: Spontaneous
  Country: DE (occurrence: DE)
  Receive Date: 20191210
  Receipt Date: 20191210
  Transmission Date: 20200122
  Serious: Yes (Hospitalization)
  Sender: FDA-Public Use
  Company Number: DE-MYLANLABS-2019M1120475

PATIENT
  Age: 45 Year
  Sex: Female

DRUGS (6)
  1. TAVOR (LORAZEPAM) [Concomitant]
     Active Substance: LORAZEPAM
     Dosage: 1 MG, BEDARF
  2. VALPROINSAEURE [Concomitant]
     Active Substance: VALPROIC ACID
     Dosage: 500 MG, 0-0-1-0P
  3. PANTOPRAZOLE [Suspect]
     Active Substance: PANTOPRAZOLE
     Indication: PRODUCT USED FOR UNKNOWN INDICATION
     Dosage: NK MG, AM 05.09.2017; BEDARF
  4. VENLAFAXINE [Concomitant]
     Active Substance: VENLAFAXINE HYDROCHLORIDE
     Dosage: 225 MG, 1-0-0-0
  5. VALPROINSAEURE [Concomitant]
     Active Substance: VALPROIC ACID
     Dosage: 300 MG, 1-0-0-0
  6. TRUXAL                             /00012101/ [Concomitant]
     Active Substance: CHLORPROTHIXENE
     Dosage: 50 MG, 0-0-0-1

REACTIONS (6)
  - Dizziness [Recovered/Resolved]
  - Rash [Recovered/Resolved]
  - Nausea [Recovered/Resolved]
  - Cold sweat [Recovered/Resolved]
  - Erythema [Recovered/Resolved]
  - Vomiting [Recovered/Resolved]
